FAERS Safety Report 8956985 (Version 1)
Quarter: 2012Q4

REPORT INFORMATION
  Report Type: 
  Country: CN (occurrence: CN)
  Receive Date: 20121211
  Receipt Date: 20121211
  Transmission Date: 20130627
  Serious: Yes (Other)
  Sender: FDA-Public Use
  Company Number: CN-PFIZER INC-2012307720

PATIENT
  Age: 56 Year
  Sex: Female

DRUGS (1)
  1. NOVASTAN [Suspect]
     Indication: DEEP VEIN THROMBOSIS
     Dosage: 10 mg, 2x/day
     Route: 041
     Dates: start: 20121102, end: 20121120

REACTIONS (1)
  - Hepatic enzyme increased [Recovered/Resolved]
